FAERS Safety Report 12153453 (Version 1)
Quarter: 2016Q1

REPORT INFORMATION
  Report Type: Spontaneous
  Country: FR (occurrence: FR)
  Receive Date: 20160306
  Receipt Date: 20160306
  Transmission Date: 20160526
  Serious: Yes (Hospitalization)
  Sender: FDA-Public Use
  Company Number: FR-ROCHE-1720841

PATIENT
  Age: 59 Year
  Sex: Female

DRUGS (7)
  1. OLANZAPINE. [Suspect]
     Active Substance: OLANZAPINE
     Indication: MANIA
     Route: 048
     Dates: start: 20160104, end: 20160108
  2. DEPAKOTE [Suspect]
     Active Substance: DIVALPROEX SODIUM
     Indication: MANIA
     Dosage: 250MG THEN 500 MG, 2 TO 3 TABLETS PER DAY
     Route: 048
     Dates: start: 20160104, end: 20160118
  3. TERCIAN [Suspect]
     Active Substance: CYAMEMAZINE
     Indication: MANIA
     Route: 048
     Dates: start: 20151229, end: 20160112
  4. VALIUM [Suspect]
     Active Substance: DIAZEPAM
     Indication: MANIA
     Route: 048
     Dates: start: 20151229, end: 20160205
  5. MIANSERINE [Suspect]
     Active Substance: MIANSERIN HYDROCHLORIDE
     Indication: MANIA
     Dosage: 30 MG THEN 20 MG
     Route: 048
     Dates: start: 20151229, end: 20160108
  6. NOCTAMIDE [Suspect]
     Active Substance: LORMETAZEPAM
     Indication: MANIA
     Route: 048
     Dates: start: 20151229, end: 20160205
  7. DEPAMIDE [Suspect]
     Active Substance: VALPROMIDE
     Indication: MANIA
     Route: 048
     Dates: start: 20151231, end: 20160104

REACTIONS (1)
  - Oedema peripheral [Recovered/Resolved]

NARRATIVE: CASE EVENT DATE: 20160101
